FAERS Safety Report 10189958 (Version 3)
Quarter: 2014Q3

REPORT INFORMATION
  Report Type: Spontaneous
  Country: JP (occurrence: JP)
  Receive Date: 20140522
  Receipt Date: 20140701
  Transmission Date: 20150326
  Serious: Yes (Death, Other)
  Sender: FDA-Public Use
  Company Number: JP-AMGEN-JPNSP2014037218

PATIENT
  Age: 73 Year
  Sex: Male
  Weight: 44 kg

DRUGS (11)
  1. MINOMYCIN [Concomitant]
     Active Substance: MINOCYCLINE HYDROCHLORIDE
     Indication: PROPHYLAXIS
     Dosage: 100 MG, 2 IN 1 D
     Route: 048
     Dates: start: 20140328, end: 20140430
  2. HIRUDOID                           /00723701/ [Concomitant]
     Indication: PROPHYLAXIS
     Dosage: UNK UNK, 2 IN 1 D
     Route: 062
     Dates: start: 20140328, end: 20140430
  3. AMLODIN [Concomitant]
     Active Substance: AMLODIPINE BESYLATE
     Indication: PROPHYLAXIS
     Dosage: 5 MG, 1 IN 1 D
     Route: 048
     Dates: start: 20140318, end: 20140430
  4. CODEINE PHOSPHATE [Concomitant]
     Active Substance: CODEINE PHOSPHATE
     Indication: PROPHYLAXIS
     Dosage: 6 G, 3 IN 1 D
     Route: 048
     Dates: start: 20140328, end: 20140430
  5. MAGMITT [Concomitant]
     Active Substance: MAGNESIUM OXIDE
     Indication: PROPHYLAXIS
     Dosage: 660 MG, 3 IN 1 D
     Route: 048
     Dates: start: 20140311, end: 20140430
  6. NEXIUM [Concomitant]
     Active Substance: ESOMEPRAZOLE MAGNESIUM
     Indication: PROPHYLAXIS
     Dosage: 20 MG, 1 IN 1 D
     Route: 048
     Dates: start: 20140318, end: 20140430
  7. SENNA [Concomitant]
     Active Substance: SENNA LEAF\SENNOSIDES\SENNOSIDES A AND B
     Indication: PROPHYLAXIS
     Dosage: 80MG, AS REQUIRED
     Route: 048
     Dates: start: 20140318, end: 20140430
  8. ISOVORIN [Concomitant]
     Active Substance: LEUCOVORIN CALCIUM
     Indication: COLON CANCER
     Dosage: 275 MG, 1 IN 2 WK
     Route: 041
     Dates: start: 20140328, end: 20140415
  9. VECTIBIX [Suspect]
     Active Substance: PANITUMUMAB
     Indication: COLON CANCER
     Dosage: 330 MG, 1 IN 2 WK
     Route: 041
     Dates: start: 20140328, end: 20140415
  10. IRINOTECAN /01280202/ [Suspect]
     Active Substance: IRINOTECAN
     Indication: COLON CANCER
     Dosage: 180 MG, 1 IN 2 WK
     Route: 041
     Dates: start: 20140328, end: 20140415
  11. 5-FU                               /00098801/ [Suspect]
     Active Substance: FLUOROURACIL
     Indication: COLON CANCER
     Dosage: 2750 MG, 1 IN 2 WK
     Route: 041
     Dates: start: 20140328, end: 20140417

REACTIONS (1)
  - Interstitial lung disease [Fatal]

NARRATIVE: CASE EVENT DATE: 20140425
